FAERS Safety Report 8248425-0 (Version None)
Quarter: 2012Q1

REPORT INFORMATION
  Report Type: 
  Country: None (occurrence: None)
  Receive Date: 20120330
  Receipt Date: 20120327
  Transmission Date: 20120608
  Serious: Yes (Death)
  Sender: FDA-Public Use
  Company Number: US-ASTRAZENECA-2012SE20361

PATIENT
  Age: 79 Year
  Sex: Female

DRUGS (1)
  1. PRILOSEC [Suspect]
     Indication: OESOPHAGEAL CARCINOMA
     Route: 048

REACTIONS (3)
  - WEIGHT DECREASED [None]
  - OESOPHAGEAL CARCINOMA [None]
  - MEDICATION ERROR [None]
